FAERS Safety Report 6196882-6 (Version None)
Quarter: 2009Q2

REPORT INFORMATION
  Report Type: 
  Country: None (occurrence: None)
  Receive Date: 20090518
  Receipt Date: 20090518
  Transmission Date: 20091009
  Serious: Yes (Other)
  Sender: FDA-Public Use
  Company Number: None

PATIENT
  Age: 57 Year

DRUGS (1)
  1. GABAPENTIN [Suspect]

REACTIONS (5)
  - DRUG INEFFECTIVE [None]
  - EPHELIDES [None]
  - ERYTHEMA [None]
  - EYE SWELLING [None]
  - LIP SWELLING [None]
